FAERS Safety Report 14745738 (Version 1)
Quarter: 2018Q2

REPORT INFORMATION
  Report Type: Report from Study
  Country: NL (occurrence: NL)
  Receive Date: 20180411
  Receipt Date: 20180411
  Transmission Date: 20180711
  Serious: Yes (Death)
  Sender: FDA-Public Use
  Company Number: NL-TEVA-2018-NL-879484

PATIENT

DRUGS (2)
  1. CARBOPLATIN. [Suspect]
     Active Substance: CARBOPLATIN
     Indication: OESOPHAGEAL CARCINOMA
     Dosage: 6 WEEKLY CARBOPLATIN AUC= 2
     Route: 065
  2. PACLITAXEL. [Suspect]
     Active Substance: PACLITAXEL
     Indication: OESOPHAGEAL CARCINOMA
     Dosage: SCHEDULED 6 WEEKLY 50 MG/M2; HOWEVER, DOSAGE ADMINISTERED AT THE ONSET OF ADR WAS UNKNOWN
     Route: 065

REACTIONS (1)
  - General physical health deterioration [Fatal]
